FAERS Safety Report 11474271 (Version 1)
Quarter: 2015Q3

REPORT INFORMATION
  Report Type: Spontaneous
  Country: US (occurrence: US)
  Receive Date: 20150908
  Receipt Date: 20150908
  Transmission Date: 20151125
  Serious: No
  Sender: FDA-Public Use
  Company Number: US-JAZZ-2014-US-004896

PATIENT
  Age: 54 Year
  Sex: Female
  Weight: 125.62 kg

DRUGS (33)
  1. XYREM [Suspect]
     Active Substance: SODIUM OXYBATE
     Dosage: 3.5 G, BID
     Route: 048
     Dates: start: 201403
  2. CYTOMEL [Concomitant]
     Active Substance: LIOTHYRONINE SODIUM
     Indication: HYPOTHYROIDISM
     Dosage: 5 ?G, QD
     Route: 048
  3. FOLIC ACID. [Concomitant]
     Active Substance: FOLIC ACID
     Indication: SUPPLEMENTATION THERAPY
     Dosage: 1 MG, QD
     Route: 048
  4. LASIX [Concomitant]
     Active Substance: FUROSEMIDE
     Indication: PRODUCT USED FOR UNKNOWN INDICATION
     Dosage: 20 MG, PRN
     Route: 048
  5. FISH OIL [Concomitant]
     Active Substance: FISH OIL
     Indication: SUPPLEMENTATION THERAPY
     Dosage: 600 MG, BID
     Route: 048
  6. TYLENOL EXTRA STRENGTH [Concomitant]
     Active Substance: ACETAMINOPHEN
     Indication: INTERVERTEBRAL DISC DEGENERATION
     Dosage: 1000 MG, PRN
     Route: 048
  7. THIAMINE HYDROCHLORIDE. [Concomitant]
     Active Substance: THIAMINE HYDROCHLORIDE
     Indication: SUPPLEMENTATION THERAPY
     Dosage: 100 MG, QD
     Route: 048
  8. METOPROLOL SUCCINATE WITH HYDROCHLOROTHIAZIDE [Concomitant]
     Indication: HYPERTENSION
     Dosage: 25 MG, QD
     Route: 048
  9. METHOTREXATE [Concomitant]
     Active Substance: METHOTREXATE
     Indication: POLYMYALGIA RHEUMATICA
     Dosage: 10 MG, QW
     Route: 048
  10. THIAMINE. [Concomitant]
     Active Substance: THIAMINE
     Indication: SUPPLEMENTATION THERAPY
     Dosage: 100 MG, QD
     Route: 048
  11. ESTRADIOL. [Concomitant]
     Active Substance: ESTRADIOL
     Indication: HYSTERECTOMY
     Dosage: 0.037 MG, QW
     Route: 062
  12. FERROUS FUMARATE [Concomitant]
     Active Substance: FERROUS FUMARATE
     Indication: SUPPLEMENTATION THERAPY
     Dosage: 325 MG, QD
     Route: 048
  13. TYLENOL [Concomitant]
     Active Substance: ACETAMINOPHEN
     Indication: INTERVERTEBRAL DISC DEGENERATION
     Dosage: 1000 MG, PRN
     Route: 048
  14. MIRALAX [Concomitant]
     Active Substance: POLYETHYLENE GLYCOL 3350
     Indication: GASTRIC BYPASS
     Dosage: UNK
     Route: 048
  15. ZINC [Concomitant]
     Active Substance: ZINC\ZINC CHLORIDE
     Indication: SUPPLEMENTATION THERAPY
     Dosage: 50 MG, QD
     Route: 048
  16. CLONIDINE. [Concomitant]
     Active Substance: CLONIDINE
     Indication: HYPERTENSION
     Dosage: 0.1 MG, BID
     Route: 048
  17. VICODIN [Concomitant]
     Active Substance: ACETAMINOPHEN\HYDROCODONE BITARTRATE
     Indication: INTERVERTEBRAL DISC DEGENERATION
     Dosage: 5 MG, PRN
     Route: 048
  18. ALPRAZOLAM. [Concomitant]
     Active Substance: ALPRAZOLAM
     Indication: INSOMNIA
     Dosage: 0.5 MG, QD
     Route: 048
  19. SENOKOT [Concomitant]
     Active Substance: SENNOSIDES
     Indication: GASTRIC BYPASS
     Dosage: UNK
     Route: 048
  20. VOLTAREN [Concomitant]
     Active Substance: DICLOFENAC SODIUM
     Indication: MUSCULOSKELETAL PAIN
     Dosage: 2 G, QID
     Route: 061
  21. VOLTAREN [Concomitant]
     Active Substance: DICLOFENAC SODIUM
     Indication: ARTHRALGIA
  22. XYREM [Suspect]
     Active Substance: SODIUM OXYBATE
     Indication: INSOMNIA
     Dosage: 2.25 G, BID
     Route: 048
     Dates: start: 201312, end: 2013
  23. PREDNISONE. [Suspect]
     Active Substance: PREDNISONE
     Indication: POLYMYALGIA RHEUMATICA
     Dosage: 5 MG, QD
     Route: 048
     Dates: start: 201302, end: 201407
  24. COLACE [Concomitant]
     Active Substance: DOCUSATE SODIUM
     Indication: GASTRIC BYPASS
     Dosage: 200 MG, QD
     Route: 048
  25. VITAMIN C [Concomitant]
     Active Substance: ASCORBIC ACID
     Indication: SUPPLEMENTATION THERAPY
     Dosage: 500 MG, QD
     Route: 048
  26. CALCITRATE [Concomitant]
     Active Substance: CALCIUM CITRATE
     Indication: SUPPLEMENTATION THERAPY
     Dosage: 1000 MG, QD
     Route: 048
  27. COENZYME Q10 [Concomitant]
     Active Substance: UBIDECARENONE
     Indication: SUPPLEMENTATION THERAPY
     Dosage: 100 MG, QD
     Route: 048
  28. METOPROLOL SUCCINATE. [Concomitant]
     Active Substance: METOPROLOL SUCCINATE
     Indication: HYPERTENSION
     Dosage: 25 MG, QD
     Route: 048
  29. XYREM [Suspect]
     Active Substance: SODIUM OXYBATE
     Dosage: DOSE ADJSUTMENTS
     Route: 048
  30. SYNTHROID [Concomitant]
     Active Substance: LEVOTHYROXINE SODIUM
     Indication: HYPOTHYROIDISM
     Dosage: 25 ?G, QD
     Route: 048
  31. ATACAND [Concomitant]
     Active Substance: CANDESARTAN CILEXETIL
     Indication: HYPERTENSION
     Dosage: 32 MG, QD
     Route: 048
  32. VITAMIN B12 [Concomitant]
     Active Substance: CYANOCOBALAMIN
     Indication: SUPPLEMENTATION THERAPY
     Dosage: 100 ?G, QD
     Route: 048
  33. MULTIVITAMIN [Concomitant]
     Active Substance: VITAMINS
     Indication: SUPPLEMENTATION THERAPY
     Dosage: UNK
     Route: 048

REACTIONS (4)
  - Off label use [Unknown]
  - Pain in extremity [Not Recovered/Not Resolved]
  - Fibromyalgia [Not Recovered/Not Resolved]
  - Weight increased [Not Recovered/Not Resolved]

NARRATIVE: CASE EVENT DATE: 201302
